FAERS Safety Report 6282653-9 (Version None)
Quarter: 2009Q3

REPORT INFORMATION
  Report Type: 
  Country: None (occurrence: None)
  Receive Date: 20090724
  Receipt Date: 20090720
  Transmission Date: 20100115
  Serious: Yes (Life-Threatening, Hospitalization)
  Sender: FDA-Public Use
  Company Number: PHHY2009NO30157

PATIENT
  Sex: Female

DRUGS (3)
  1. VOLTAREN [Suspect]
     Dosage: 2 DF, UNK
     Route: 048
     Dates: start: 20090228, end: 20090228
  2. FOSAMAX [Concomitant]
     Dosage: 70 MG, QW
     Route: 048
  3. CENTYL [Concomitant]
     Dosage: 5 MG/DAY
     Route: 048

REACTIONS (10)
  - ANAPHYLACTIC REACTION [None]
  - BODY TEMPERATURE DECREASED [None]
  - CONFUSIONAL STATE [None]
  - HEART RATE INCREASED [None]
  - HYPERTENSION [None]
  - HYPOXIA [None]
  - LOSS OF CONSCIOUSNESS [None]
  - OXYGEN SATURATION DECREASED [None]
  - SINUS TACHYCARDIA [None]
  - TROPONIN I INCREASED [None]
